FAERS Safety Report 9624149 (Version 1)
Quarter: 2013Q4

REPORT INFORMATION
  Report Type: Spontaneous
  Country: US (occurrence: US)
  Receive Date: 20131015
  Receipt Date: 20131015
  Transmission Date: 20140711
  Serious: No
  Sender: FDA-Public Use
  Company Number: US-UPSHER-SMITH LABORATORIES, INC.-13000138

PATIENT
  Age: 50 Year
  Sex: Female

DRUGS (6)
  1. KLOR-CON M [Suspect]
     Indication: BLOOD POTASSIUM DECREASED
     Dosage: 20 MEQ, QD
     Route: 048
     Dates: start: 201202, end: 201203
  2. SYNTHROID [Concomitant]
     Indication: HYPOTHYROIDISM
     Dosage: UNK
  3. METOPROLOL [Concomitant]
     Indication: HYPERTENSION
     Dosage: UNK
  4. DIOVAN                             /01319601/ [Concomitant]
     Indication: HYPERTENSION
     Dosage: UNK
  5. AMBIEN [Concomitant]
     Indication: INSOMNIA
     Dosage: UNK
  6. EFFEXOR                            /01233801/ [Concomitant]
     Indication: DEPRESSION
     Dosage: UNK

REACTIONS (1)
  - Device damage [Not Recovered/Not Resolved]
